FAERS Safety Report 5860233-4 (Version None)
Quarter: 2008Q3

REPORT INFORMATION
  Report Type: 
  Country: None (occurrence: None)
  Receive Date: 20080827
  Receipt Date: 20080819
  Transmission Date: 20090109
  Serious: Yes (Hospitalization)
  Sender: FDA-Public Use
  Company Number: DE-GENENTECH-266540

PATIENT
  Sex: Female

DRUGS (2)
  1. XOLAIR [Suspect]
     Indication: ASTHMA
     Dosage: 150 MG, X2
     Route: 058
     Dates: start: 20080619
  2. XOLAIR [Suspect]
     Dosage: 300 MG, SINGLE
     Route: 058
     Dates: start: 20080707

REACTIONS (2)
  - DRUG INEFFECTIVE [None]
  - STATUS ASTHMATICUS [None]
